APPROVED DRUG PRODUCT: LEVOLEUCOVORIN CALCIUM
Active Ingredient: LEVOLEUCOVORIN CALCIUM
Strength: EQ 175MG BASE/17.5ML (EQ 10MG BASE/ML)
Dosage Form/Route: SOLUTION;INTRAVENOUS
Application: A213797 | Product #001
Applicant: PRAXGEN PHARMACEUTICALS LLC
Approved: Nov 2, 2021 | RLD: No | RS: No | Type: DISCN